FAERS Safety Report 8983029 (Version 1)
Quarter: 2012Q4

REPORT INFORMATION
  Report Type: Report from Study
  Country: DE (occurrence: DE)
  Receive Date: 20121221
  Receipt Date: 20121221
  Transmission Date: 20130627
  Serious: Yes (Hospitalization)
  Sender: FDA-Public Use
  Company Number: DE-ABBOTT-12P-062-1024390-00

PATIENT
  Age: 34 None
  Sex: Female

DRUGS (2)
  1. HUMIRA [Suspect]
     Indication: CROHN^S DISEASE
     Route: 058
     Dates: start: 20120516, end: 20121031
  2. AZULFIDINE [Concomitant]
     Indication: CROHN^S DISEASE

REACTIONS (2)
  - Enterostomy [Recovering/Resolving]
  - Arthralgia [Recovering/Resolving]
